FAERS Safety Report 20880899 (Version 1)
Quarter: 2022Q2

REPORT INFORMATION
  Report Type: Spontaneous
  Country: US (occurrence: US)
  Receive Date: 20220526
  Receipt Date: 20220526
  Transmission Date: 20220721
  Serious: No
  Sender: FDA-Public Use
  Company Number: US-RADIUS HEALTH INC.-2021US000914

PATIENT
  Age: 65 Year
  Sex: Female

DRUGS (2)
  1. TYMLOS [Suspect]
     Active Substance: ABALOPARATIDE
     Indication: Osteoporotic fracture
     Dosage: 80 MCG, QD
     Route: 058
     Dates: start: 20210305
  2. TYMLOS [Suspect]
     Active Substance: ABALOPARATIDE
     Indication: Senile osteoporosis

REACTIONS (11)
  - Angina pectoris [Not Recovered/Not Resolved]
  - Myalgia [Not Recovered/Not Resolved]
  - Bone pain [Not Recovered/Not Resolved]
  - Dizziness [Recovered/Resolved]
  - Palpitations [Recovered/Resolved]
  - Nausea [Recovered/Resolved]
  - Back pain [Recovered/Resolved]
  - Malaise [Recovered/Resolved]
  - Headache [Not Recovered/Not Resolved]
  - Injection site pain [Recovering/Resolving]
  - Product administered at inappropriate site [Unknown]

NARRATIVE: CASE EVENT DATE: 20210305
